FAERS Safety Report 7101427-X (Version None)
Quarter: 2010Q4

REPORT INFORMATION
  Report Type: 
  Country: None (occurrence: None)
  Receive Date: 20101115
  Receipt Date: 20101110
  Transmission Date: 20110411
  Serious: Yes (Other)
  Sender: FDA-Public Use
  Company Number: US-PFIZER INC-2010146109

PATIENT
  Sex: Female

DRUGS (1)
  1. CHANTIX [Suspect]
     Dosage: UNK
     Dates: start: 20070901

REACTIONS (7)
  - ANXIETY [None]
  - CONVULSION [None]
  - DEPRESSION [None]
  - INJURY [None]
  - LOSS OF CONSCIOUSNESS [None]
  - NIGHTMARE [None]
  - SUICIDAL IDEATION [None]
